FAERS Safety Report 9563910 (Version 1)
Quarter: 2013Q3

REPORT INFORMATION
  Report Type: Report from Study
  Country: AR (occurrence: AR)
  Receive Date: 20130927
  Receipt Date: 20130927
  Transmission Date: 20140515
  Serious: Yes (Death, Hospitalization)
  Sender: FDA-Public Use
  Company Number: AR-ROCHE-1281717

PATIENT
  Sex: Male

DRUGS (2)
  1. LUCENTIS [Suspect]
     Indication: VISUAL ACUITY REDUCED
     Route: 050
     Dates: start: 2012
  2. LUCENTIS [Suspect]
     Indication: DRY EYE

REACTIONS (3)
  - Cardiac arrest [Fatal]
  - Cardiac failure [Unknown]
  - Dehydration [Unknown]
